FAERS Safety Report 6259372-8 (Version None)
Quarter: 2009Q3

REPORT INFORMATION
  Report Type: 
  Country: None (occurrence: None)
  Receive Date: 20090702
  Receipt Date: 20090617
  Transmission Date: 20100115
  Serious: Yes (Other)
  Sender: FDA-Public Use
  Company Number: B0580740A

PATIENT
  Age: 53 Year
  Sex: Female

DRUGS (2)
  1. LAPATINIB (FORMULATION UNKNOWN) (GENERIC) (LAPATINIB) [Suspect]
     Dosage: ORAL
     Route: 048
  2. CAPECITABINE [Concomitant]

REACTIONS (2)
  - PALMAR-PLANTAR ERYTHRODYSAESTHESIA SYNDROME [None]
  - PARONYCHIA [None]
